FAERS Safety Report 4873149-7 (Version None)
Quarter: 2006Q1

REPORT INFORMATION
  Report Type: 
  Country: None (occurrence: None)
  Receive Date: 20060105
  Receipt Date: 20051227
  Transmission Date: 20060701
  Serious: Yes (Other)
  Sender: FDA-Public Use
  Company Number: JP-JPN-A20053205

PATIENT
  Age: 61 Year
  Sex: Male
  Weight: 55 kg

DRUGS (4)
  1. PAXIL [Suspect]
     Route: 048
  2. AMOXAPINE [Suspect]
     Dosage: 25MG PER DAY
     Route: 048
  3. BROMAZEPAM [Concomitant]
     Dosage: 6MG PER DAY
     Route: 065
  4. ETIZOLAM [Concomitant]
     Dosage: 1MG PER DAY
     Route: 048

REACTIONS (7)
  - ABULIA [None]
  - AMNESIA [None]
  - DISORIENTATION [None]
  - DIZZINESS POSTURAL [None]
  - FALL [None]
  - FRACTURE [None]
  - ORTHOSTATIC HYPOTENSION [None]
